FAERS Safety Report 11983428 (Version 2)
Quarter: 2016Q1

REPORT INFORMATION
  Report Type: Spontaneous
  Country: US (occurrence: US)
  Receive Date: 20160201
  Receipt Date: 20160211
  Transmission Date: 20160526
  Serious: No
  Sender: FDA-Public Use
  Company Number: US-HORIZON-DUE-0010-2016

PATIENT
  Age: 60 Year
  Sex: Female

DRUGS (1)
  1. DUEXIS [Suspect]
     Active Substance: FAMOTIDINE\IBUPROFEN
     Indication: NEUROMA
     Dates: start: 201512

REACTIONS (2)
  - Off label use [Unknown]
  - Lip blister [Recovered/Resolved]

NARRATIVE: CASE EVENT DATE: 201512
